FAERS Safety Report 7746936-5 (Version None)
Quarter: 2011Q3

REPORT INFORMATION
  Report Type: 
  Country: None (occurrence: None)
  Receive Date: 20110913
  Receipt Date: 20110830
  Transmission Date: 20111222
  Serious: Yes (Hospitalization, Other)
  Sender: FDA-Public Use
  Company Number: PHEH2011US02918

PATIENT
  Sex: Female

DRUGS (10)
  1. EXJADE [Suspect]
     Dosage: 20 MG/KG, QD
     Dates: start: 20071112
  2. FLAGYL [Concomitant]
     Dosage: UNK UKN, UNK
  3. MINOCYCLINE HCL [Concomitant]
     Dosage: UNK UKN, UNK
  4. PROCRIT [Concomitant]
     Dosage: UNK UKN, UNK
     Dates: start: 20070625
  5. MULTI-VITAMIN [Concomitant]
     Dosage: UNK UKN, UNK
  6. NEULASTA [Concomitant]
     Dosage: 6 MG, Q 10 D
  7. FOLIC ACID [Concomitant]
     Dosage: UNK UKN, UNK
  8. AVELOX [Concomitant]
     Dosage: UNK UKN, UNK
  9. LEXAPRO [Concomitant]
     Dosage: UNK UKN, UNK
  10. ATACAND [Concomitant]
     Dosage: UNK UKN, UNK

REACTIONS (2)
  - PERIRECTAL ABSCESS [None]
  - REFRACTORY ANAEMIA WITH RINGED SIDEROBLASTS [None]
